FAERS Safety Report 4358353-9 (Version None)
Quarter: 2004Q2

REPORT INFORMATION
  Report Type: 
  Country: None (occurrence: None)
  Receive Date: 20040514
  Receipt Date: 20040504
  Transmission Date: 20050107
  Serious: Yes (Other)
  Sender: FDA-Public Use
  Company Number: PHFR2004GB02003

PATIENT
  Age: 77 Year
  Sex: Female

DRUGS (7)
  1. RIVASTIGMINE [Suspect]
     Indication: DEMENTIA
     Dosage: 1.5 MG/DAY
     Route: 048
     Dates: start: 20040303
  2. RIVASTIGMINE [Suspect]
     Dosage: 3 MG, BID
     Route: 048
     Dates: start: 20040331, end: 20040407
  3. FELODIPINE [Concomitant]
     Indication: HYPERTENSION
     Dosage: 2.5 MG, QD
     Route: 048
     Dates: start: 20020101
  4. BENDROFLUAZIDE [Concomitant]
     Dosage: 2.5 MG, QD
     Route: 048
     Dates: start: 20020101
  5. CO-DYDRAMOL [Concomitant]
     Indication: PAIN
     Dosage: 10/500 MG/DAY
     Route: 048
     Dates: start: 20020101
  6. PAROXETINE HCL [Concomitant]
     Indication: DEPRESSION
     Dosage: 10 MG/DAY
     Route: 048
     Dates: start: 20040318
  7. VITAMIN B-12 [Concomitant]
     Indication: PERNICIOUS ANAEMIA
     Dates: start: 20031218

REACTIONS (7)
  - ASTHENIA [None]
  - FEELING ABNORMAL [None]
  - HEADACHE [None]
  - LETHARGY [None]
  - PANIC REACTION [None]
  - PARAESTHESIA [None]
  - TREMOR [None]
